FAERS Safety Report 12415048 (Version 1)
Quarter: 2016Q2

REPORT INFORMATION
  Report Type: Report from Study
  Country: BR (occurrence: BR)
  Receive Date: 20160530
  Receipt Date: 20160530
  Transmission Date: 20160815
  Serious: Yes (Other)
  Sender: FDA-Public Use
  Company Number: BR-ROCHE-1765292

PATIENT
  Age: 66 Year
  Sex: Female

DRUGS (3)
  1. XOLAIR [Suspect]
     Active Substance: OMALIZUMAB
     Indication: CHRONIC OBSTRUCTIVE PULMONARY DISEASE
     Dosage: 2 DF, QMO
     Route: 058
     Dates: start: 201504
  2. XOLAIR [Suspect]
     Active Substance: OMALIZUMAB
     Indication: EMPHYSEMA
     Dosage: 2 DF (AMPOULES), QMO
     Route: 058
     Dates: start: 201410
  3. XOLAIR [Suspect]
     Active Substance: OMALIZUMAB
     Indication: ASTHMA

REACTIONS (2)
  - Dyspnoea [Recovering/Resolving]
  - Product use issue [Unknown]

NARRATIVE: CASE EVENT DATE: 201410
